FAERS Safety Report 6607942-7 (Version None)
Quarter: 2010Q1

REPORT INFORMATION
  Report Type: 
  Country: None (occurrence: None)
  Receive Date: 20100222
  Receipt Date: 20100212
  Transmission Date: 20100710
  Serious: Yes (Death, Hospitalization)
  Sender: FDA-Public Use
  Company Number: 2010AC000125

PATIENT

DRUGS (1)
  1. DIGOXIN [Suspect]
     Dosage: 0.125 MG;UNKNOWN;PO
     Route: 048
     Dates: start: 20080306

REACTIONS (10)
  - ATRIAL FIBRILLATION [None]
  - BUNDLE BRANCH BLOCK LEFT [None]
  - CHEST PAIN [None]
  - DISEASE RECURRENCE [None]
  - DYSPNOEA [None]
  - ECONOMIC PROBLEM [None]
  - HEART RATE DECREASED [None]
  - INJURY [None]
  - MALAISE [None]
  - THIRST [None]
